FAERS Safety Report 4647873-5 (Version None)
Quarter: 2005Q2

REPORT INFORMATION
  Report Type: 
  Country: None (occurrence: None)
  Receive Date: 20050428
  Receipt Date: 20050308
  Transmission Date: 20051028
  Serious: Yes (Death, Hospitalization)
  Sender: FDA-Public Use
  Company Number: US-BRISTOL-MYERS SQUIBB COMPANY-12891065

PATIENT
  Age: 66 Year
  Sex: Male

DRUGS (4)
  1. ERBITUX [Suspect]
     Indication: COLORECTAL CANCER
     Dosage: THERAPY DATES 13-DEC-04 TO 21-FEB-2005. REC'D 500 MG (250 MG/M2).
     Route: 042
     Dates: start: 20050221, end: 20050221
  2. DECADRON [Concomitant]
     Indication: PREMEDICATION
     Dosage: THERAPY DATES DEC-2004 TO FEB-2005.
     Dates: start: 20050201, end: 20050201
  3. BENADRYL [Concomitant]
     Indication: PREMEDICATION
     Dosage: THERAPY DATES DEC-2004 TO FEB-2005.
     Dates: start: 20050201, end: 20050201
  4. ZANTAC [Concomitant]
     Indication: PREMEDICATION
     Dosage: THERAPY DATES DEC-2004 TO FEB-2005.
     Dates: start: 20050201, end: 20050201

REACTIONS (5)
  - CARDIAC FAILURE [None]
  - GASTROINTESTINAL EROSION [None]
  - GASTROINTESTINAL PERFORATION [None]
  - SEPSIS [None]
  - TUMOUR NECROSIS [None]
